FAERS Safety Report 5988296-6 (Version None)
Quarter: 2008Q4

REPORT INFORMATION
  Report Type: 
  Country: None (occurrence: None)
  Receive Date: 20081204
  Receipt Date: 20081123
  Transmission Date: 20090506
  Serious: No
  Sender: FDA-Public Use
  Company Number: US025087

PATIENT
  Sex: Female

DRUGS (4)
  1. FENTORA [Suspect]
     Indication: CANCER PAIN
     Dosage: 200 UG UNK BUCCAL
     Route: 002
  2. FENTANYL CITRATE [Suspect]
     Indication: CANCER PAIN
     Dosage: 200 UG UNK BUCCAL
     Route: 002
  3. FENTANYL TRANSDERMAL SYSTEM [Concomitant]
  4. OXYCODONE [Concomitant]

REACTIONS (2)
  - DRUG PRESCRIBING ERROR [None]
  - MEDICATION ERROR [None]
